FAERS Safety Report 4380450-2 (Version None)
Quarter: 2004Q2

REPORT INFORMATION
  Report Type: 
  Country: None (occurrence: None)
  Receive Date: 20040614
  Receipt Date: 20040601
  Transmission Date: 20050107
  Serious: Yes (Other)
  Sender: FDA-Public Use
  Company Number: 2003120465

PATIENT
  Age: 36 Year
  Sex: Female

DRUGS (3)
  1. DOXYCYCLINE (DOXYCYCLINE) [Suspect]
     Indication: ACNE
     Dosage: 100 MG (DAILY),ORAL
     Route: 048
     Dates: start: 20030101, end: 20031101
  2. DOXYCYCLINE (DOXYCYCLINE) [Suspect]
     Indication: ACNE
     Dosage: 100 MG (DAILY),ORAL
     Route: 048
     Dates: start: 20031101, end: 20031121
  3. ESTRADIOL [Concomitant]

REACTIONS (7)
  - AGEUSIA [None]
  - DYSPHAGIA [None]
  - HYPOAESTHESIA ORAL [None]
  - MEDICATION ERROR [None]
  - PHARMACEUTICAL PRODUCT COMPLAINT [None]
  - SINUS CONGESTION [None]
  - SINUS DISORDER [None]
